FAERS Safety Report 4600650-3 (Version None)
Quarter: 2005Q1

REPORT INFORMATION
  Report Type: 
  Country: None (occurrence: None)
  Receive Date: 20050304
  Receipt Date: 20050218
  Transmission Date: 20050727
  Serious: Yes (Other)
  Sender: FDA-Public Use
  Company Number: 2005-UK-00272UK

PATIENT
  Age: 30 Year
  Sex: Female

DRUGS (2)
  1. NEVIRAPINE [Suspect]
     Indication: SYSTEMIC ANTIVIRAL TREATMENT
     Dosage: 400 MG (200 MG,) PO
     Route: 048
     Dates: start: 20031124
  2. COMBIVIR [Suspect]
     Indication: SYSTEMIC ANTIVIRAL TREATMENT
     Dosage: 2 TABLETS PO
     Route: 048
     Dates: start: 20031124

REACTIONS (3)
  - DRUG EXPOSURE DURING PREGNANCY [None]
  - HEPATOTOXICITY [None]
  - STILLBIRTH [None]
